FAERS Safety Report 5781582-4 (Version None)
Quarter: 2008Q2

REPORT INFORMATION
  Report Type: 
  Country: None (occurrence: None)
  Receive Date: 20080623
  Receipt Date: 20080613
  Transmission Date: 20081010
  Serious: Yes (Hospitalization)
  Sender: FDA-Public Use
  Company Number: DE-JNJFOC-20080603284

PATIENT
  Age: 87 Year
  Sex: Male

DRUGS (8)
  1. DURAGESIC-100 [Suspect]
     Indication: DRUG USE FOR UNKNOWN INDICATION
     Route: 062
  2. LYRICA [Interacting]
     Route: 048
  3. LYRICA [Interacting]
     Indication: DRUG USE FOR UNKNOWN INDICATION
     Route: 048
  4. SEROQUEL [Interacting]
     Route: 048
  5. SEROQUEL [Interacting]
     Indication: DRUG USE FOR UNKNOWN INDICATION
     Route: 048
  6. CYMBALTA [Interacting]
     Indication: DRUG USE FOR UNKNOWN INDICATION
     Route: 048
  7. ACTRAPHANE [Concomitant]
     Route: 058
  8. CIPRAMIL [Concomitant]

REACTIONS (2)
  - DRUG INTERACTION [None]
  - PARKINSONISM [None]
